FAERS Safety Report 23602974 (Version 2)
Quarter: 2024Q1

REPORT INFORMATION
  Report Type: Spontaneous
  Country: IN (occurrence: IN)
  Receive Date: 20240306
  Receipt Date: 20240314
  Transmission Date: 20240409
  Serious: Yes (Other)
  Sender: FDA-Public Use
  Company Number: IN-CIPLA LTD.-2024IN02288

PATIENT

DRUGS (2)
  1. ALENDRONATE SODIUM [Suspect]
     Active Substance: ALENDRONATE SODIUM
     Indication: Prostate cancer
     Dosage: 70 MILLIGRAM (1 TABLET), ONCE IN A WEEK, IN MORNING
     Route: 048
     Dates: start: 20240218
  2. ABIRATERONE [Concomitant]
     Active Substance: ABIRATERONE
     Indication: Prostate cancer
     Dosage: 1000 MILLIGRAM, QD (4 TABLETS/AT ONCE IN THE MORNING) (USING SINCE LAST 6 MONTHS)
     Route: 065
     Dates: start: 202309

REACTIONS (6)
  - Loss of consciousness [Not Recovered/Not Resolved]
  - Poisoning [Not Recovered/Not Resolved]
  - Off label use [Unknown]
  - Headache [Not Recovered/Not Resolved]
  - Vomiting [Not Recovered/Not Resolved]
  - Diarrhoea [Not Recovered/Not Resolved]

NARRATIVE: CASE EVENT DATE: 20240218
